FAERS Safety Report 6866417-0 (Version None)
Quarter: 2010Q2

REPORT INFORMATION
  Report Type: 
  Country: None (occurrence: None)
  Receive Date: 20100601
  Receipt Date: 20100301
  Transmission Date: 20101027
  Serious: No
  Sender: FDA-Public Use
  Company Number: MC201000077

PATIENT
  Age: 60 Year
  Sex: Female
  Weight: 83 kg

DRUGS (11)
  1. CLEVIPREX [Suspect]
     Indication: HYPERTENSION
     Dosage: 1 MG, HR, INTRAVENOUS ; 2 MG, HR, INTRAVENOUS ; 4 MG, HR, INTRAVENOUS ; 2 MG, HR, INTRAVENOUS
     Route: 042
     Dates: start: 20100225, end: 20100225
  2. CLEVIPREX [Suspect]
     Indication: HYPERTENSION
     Dosage: 1 MG, HR, INTRAVENOUS ; 2 MG, HR, INTRAVENOUS ; 4 MG, HR, INTRAVENOUS ; 2 MG, HR, INTRAVENOUS
     Route: 042
     Dates: start: 20100225, end: 20100225
  3. CLEVIPREX [Suspect]
     Indication: HYPERTENSION
     Dosage: 1 MG, HR, INTRAVENOUS ; 2 MG, HR, INTRAVENOUS ; 4 MG, HR, INTRAVENOUS ; 2 MG, HR, INTRAVENOUS
     Route: 042
     Dates: start: 20100225, end: 20100225
  4. CLEVIPREX [Suspect]
     Indication: HYPERTENSION
     Dosage: 1 MG, HR, INTRAVENOUS ; 2 MG, HR, INTRAVENOUS ; 4 MG, HR, INTRAVENOUS ; 2 MG, HR, INTRAVENOUS
     Route: 042
     Dates: start: 20100225, end: 20100225
  5. VASOTEC [Concomitant]
  6. LANTUS [Concomitant]
  7. LISINOPRIL (LISINOPRIL DIHYDRATE) [Concomitant]
  8. METOPROLOL TARTRATE [Concomitant]
  9. ASPIRIN [Concomitant]
  10. PLAVIX [Concomitant]
  11. CRESTOR [Concomitant]

REACTIONS (2)
  - OXYGEN SATURATION DECREASED [None]
  - VENTILATION PERFUSION MISMATCH [None]
